FAERS Safety Report 17655709 (Version 1)
Quarter: 2020Q2

REPORT INFORMATION
  Report Type: Spontaneous
  Country: US (occurrence: US)
  Receive Date: 20200410
  Receipt Date: 20200410
  Transmission Date: 20200713
  Serious: Yes (Other)
  Sender: FDA-Public Use
  Company Number: None

PATIENT
  Age: 73 Year
  Sex: Female
  Weight: 64.8 kg

DRUGS (23)
  1. HYOSCYAMINE. [Concomitant]
     Active Substance: HYOSCYAMINE
  2. MAGNESIUM GLYCINATE [Concomitant]
     Active Substance: MAGNESIUM GLYCINATE
  3. OMEGA 3 [Concomitant]
     Active Substance: OMEGA-3 FATTY ACIDS
  4. VITAMIN C [Concomitant]
     Active Substance: ASCORBIC ACID
  5. AZELASTINE. [Concomitant]
     Active Substance: AZELASTINE HYDROCHLORIDE
  6. TYLENOL WITH CODEINE [Concomitant]
     Active Substance: ACETAMINOPHEN\CODEINE PHOSPHATE
  7. LOSARTAN. [Concomitant]
     Active Substance: LOSARTAN
  8. LEVOCETIRIZINE [Concomitant]
     Active Substance: LEVOCETIRIZINE
  9. CHELATED ZINC [Concomitant]
  10. VENTOLIN [Concomitant]
     Active Substance: ALBUTEROL SULFATE
  11. LEVOTHYROXINE. [Concomitant]
     Active Substance: LEVOTHYROXINE
  12. VITAMIN B2, B12, AND D3 [Concomitant]
  13. PROMETHAZINE [Concomitant]
     Active Substance: PROMETHAZINE HYDROCHLORIDE
  14. POTASSIUM 80 MEQ [Concomitant]
  15. FLUTICASONE. [Concomitant]
     Active Substance: FLUTICASONE
  16. LOPERAMIDE [Concomitant]
     Active Substance: LOPERAMIDE
  17. DIAZEPAM. [Concomitant]
     Active Substance: DIAZEPAM
  18. PROBIOTIC [Concomitant]
     Active Substance: PROBIOTICS NOS
  19. TIZANIDINE. [Suspect]
     Active Substance: TIZANIDINE
     Indication: MUSCLE RELAXANT THERAPY
     Dates: start: 20200409, end: 20200409
  20. PHENOBARBITAL. [Concomitant]
     Active Substance: PHENOBARBITAL
  21. SPIRONOLACTONE. [Concomitant]
     Active Substance: SPIRONOLACTONE
  22. MONTELUKAST [Concomitant]
     Active Substance: MONTELUKAST SODIUM
  23. HYDROCHLOROTHIAZIDE. [Concomitant]
     Active Substance: HYDROCHLOROTHIAZIDE

REACTIONS (11)
  - Disorientation [None]
  - Back pain [None]
  - Hypoaesthesia [None]
  - Muscle spasms [None]
  - Tongue disorder [None]
  - Chest discomfort [None]
  - Balance disorder [None]
  - Dysphagia [None]
  - Feeling abnormal [None]
  - Migraine [None]
  - Visual impairment [None]

NARRATIVE: CASE EVENT DATE: 20200409
